FAERS Safety Report 8559214-1 (Version None)
Quarter: 2012Q3

REPORT INFORMATION
  Report Type: 
  Country: None (occurrence: None)
  Receive Date: 20120720
  Receipt Date: 20120709
  Transmission Date: 20120928
  Serious: Yes (Other)
  Sender: FDA-Public Use
  Company Number: 2012P1048743

PATIENT
  Age: 62 Year
  Sex: Female

DRUGS (7)
  1. MOUTHWASHES [Concomitant]
  2. CYCLOPHOSPHAMIDE [Concomitant]
  3. ANASTROZOLE [Concomitant]
  4. CHLORHEXIDINE GLUCONATE [Concomitant]
  5. DEXAMETHASONE [Suspect]
     Indication: CHEMOTHERAPY
     Dosage: 16 MG; QD;
  6. DOXORUBICIN HYDROCHLORIDE [Concomitant]
  7. OMEPRAZOLE [Concomitant]

REACTIONS (9)
  - OSTEONECROSIS [None]
  - OROANTRAL FISTULA [None]
  - PURULENT DISCHARGE [None]
  - ACCIDENTAL OVERDOSE [None]
  - RHINITIS [None]
  - SINUSITIS [None]
  - MYOPATHY [None]
  - PARAESTHESIA [None]
  - STAPHYLOCOCCUS TEST POSITIVE [None]
